FAERS Safety Report 14321361 (Version 1)
Quarter: 2017Q4

REPORT INFORMATION
  Report Type: Report from Study
  Country: BR (occurrence: BR)
  Receive Date: 20171223
  Receipt Date: 20171223
  Transmission Date: 20180321
  Serious: Yes (Death)
  Sender: FDA-Public Use
  Company Number: PHHY2017BR155345

PATIENT
  Age: 31 Year
  Sex: Female
  Weight: 40 kg

DRUGS (2)
  1. VOTRIENT [Suspect]
     Active Substance: PAZOPANIB HYDROCHLORIDE
     Indication: METASTATIC RENAL CELL CARCINOMA
     Dosage: 800 MG, QD
     Route: 048
     Dates: start: 20170915
  2. VOTRIENT [Suspect]
     Active Substance: PAZOPANIB HYDROCHLORIDE
     Dosage: 400 MG, BID
     Route: 048
     Dates: start: 20170918

REACTIONS (7)
  - Nervousness [Unknown]
  - Malaise [Unknown]
  - Pain [Recovered/Resolved]
  - Death [Fatal]
  - Renal disorder [Unknown]
  - Pain in extremity [Unknown]
  - Liver disorder [Unknown]

NARRATIVE: CASE EVENT DATE: 20171218
